FAERS Safety Report 7743575-7 (Version None)
Quarter: 2011Q3

REPORT INFORMATION
  Report Type: 
  Country: None (occurrence: None)
  Receive Date: 20110912
  Receipt Date: 20110905
  Transmission Date: 20111222
  Serious: Yes (Disabling)
  Sender: FDA-Public Use
  Company Number: FI-TEVA-299965ISR

PATIENT
  Age: 64 Year
  Sex: Female

DRUGS (1)
  1. SIMVASTATIN [Suspect]
     Dosage: 40 MILLIGRAM;
     Route: 048
     Dates: start: 20090101, end: 20110101

REACTIONS (1)
  - MUSCULAR WEAKNESS [None]
